FAERS Safety Report 12954080 (Version 1)
Quarter: 2016Q4

REPORT INFORMATION
  Report Type: Spontaneous
  Country: IN (occurrence: IN)
  Receive Date: 20161118
  Receipt Date: 20161118
  Transmission Date: 20170207
  Serious: Yes (Hospitalization)
  Sender: FDA-Public Use
  Company Number: IN-ACCORD-045761

PATIENT
  Age: 15 Month
  Sex: Male
  Weight: 11 kg

DRUGS (1)
  1. GLIPIZIDE. [Suspect]
     Active Substance: GLIPIZIDE
     Dosage: HALF TABLET

REACTIONS (3)
  - Encephalopathy [Recovered/Resolved]
  - Accidental exposure to product [Unknown]
  - Hypoglycaemia [Recovered/Resolved]
